FAERS Safety Report 5252900-0 (Version None)
Quarter: 2007Q1

REPORT INFORMATION
  Report Type: 
  Country: None (occurrence: None)
  Receive Date: 20070301
  Receipt Date: 20070215
  Transmission Date: 20070707
  Serious: Yes (Hospitalization)
  Sender: FDA-Public Use
  Company Number: AU-ELI_LILLY_AND_COMPANY-AU200702004466

PATIENT
  Age: 60 Year
  Sex: Female

DRUGS (5)
  1. OLANZAPINE [Suspect]
     Indication: BIPOLAR DISORDER
     Dosage: 5 MG, EACH MORNING
     Dates: start: 20030101
  2. OLANZAPINE [Suspect]
     Dosage: 10 MG, EACH EVENING
     Dates: start: 20030101
  3. LITHIUM CARBONATE [Concomitant]
     Dosage: 1.75 MG, DAILY (1/D)
  4. VALPROATE SODIUM [Concomitant]
     Dosage: 500 MG, 2/D
  5. COGENTIN [Concomitant]

REACTIONS (1)
  - BALANCE DISORDER [None]
